FAERS Safety Report 17891332 (Version 3)
Quarter: 2020Q3

REPORT INFORMATION
  Report Type: Spontaneous
  Country: US (occurrence: US)
  Receive Date: 20200612
  Receipt Date: 20200825
  Transmission Date: 20201103
  Serious: No
  Sender: FDA-Public Use
  Company Number: US-PFIZER INC-2020227720

PATIENT
  Age: 63 Year
  Sex: Female
  Weight: 79 kg

DRUGS (6)
  1. COLCRYS [Concomitant]
     Active Substance: COLCHICINE
     Indication: RHEUMATOID ARTHRITIS
     Dosage: UNK
  2. COLCRYS [Concomitant]
     Active Substance: COLCHICINE
     Indication: OSTEOARTHRITIS
  3. HUMIRA [Concomitant]
     Active Substance: ADALIMUMAB
     Indication: OSTEOARTHRITIS
  4. XELJANZ XR [Suspect]
     Active Substance: TOFACITINIB CITRATE
     Indication: RHEUMATOID ARTHRITIS
     Dosage: 11 MG(MAYBE 1 OR 2 TAKEN DAILY)
     Dates: end: 2017
  5. HUMIRA [Concomitant]
     Active Substance: ADALIMUMAB
     Indication: RHEUMATOID ARTHRITIS
     Dosage: UNK
  6. XELJANZ XR [Suspect]
     Active Substance: TOFACITINIB CITRATE
     Indication: OSTEOARTHRITIS

REACTIONS (4)
  - Pain [Not Recovered/Not Resolved]
  - Body height decreased [Unknown]
  - Mobility decreased [Not Recovered/Not Resolved]
  - Pain in extremity [Unknown]

NARRATIVE: CASE EVENT DATE: 20200318
